FAERS Safety Report 20298217 (Version 1)
Quarter: 2022Q1

REPORT INFORMATION
  Report Type: Spontaneous
  Country: US (occurrence: None)
  Receive Date: 20220104
  Receipt Date: 20220104
  Transmission Date: 20220423
  Serious: Yes (Life-Threatening, Hospitalization)
  Sender: FDA-Public Use
  Company Number: None

PATIENT
  Age: 90 Year
  Sex: Male

DRUGS (2)
  1. APIXABAN [Suspect]
     Active Substance: APIXABAN
     Indication: Prophylaxis
     Dosage: FREQUENCY : TWICE A DAY;?
     Route: 048
     Dates: start: 20180909, end: 20211025
  2. APIXABAN [Suspect]
     Active Substance: APIXABAN
     Indication: Cerebrovascular accident

REACTIONS (4)
  - Haematochezia [None]
  - Blood pressure systolic decreased [None]
  - Gastric haemorrhage [None]
  - Haemoglobin decreased [None]

NARRATIVE: CASE EVENT DATE: 20211025
